FAERS Safety Report 25229696 (Version 1)
Quarter: 2025Q2

REPORT INFORMATION
  Report Type: Spontaneous
  Country: ES (occurrence: ES)
  Receive Date: 20250423
  Receipt Date: 20250423
  Transmission Date: 20250716
  Serious: Yes (Hospitalization, Other)
  Sender: LEADING PHARMA
  Company Number: ES-LEADINGPHARMA-ES-2025LEALIT00076

PATIENT
  Age: 68 Year
  Sex: Male

DRUGS (3)
  1. OXYBUTYNIN CHLORIDE [Suspect]
     Active Substance: OXYBUTYNIN CHLORIDE
     Indication: Paraplegia
     Route: 065
  2. ROSUVASTATIN [Suspect]
     Active Substance: ROSUVASTATIN
     Indication: Paraplegia
     Route: 065
  3. METFORMIN [Suspect]
     Active Substance: METFORMIN HYDROCHLORIDE
     Indication: Paraplegia
     Route: 065

REACTIONS (2)
  - Intestinal pseudo-obstruction [Recovered/Resolved]
  - Product use in unapproved indication [Unknown]
